FAERS Safety Report 7540587-3 (Version None)
Quarter: 2011Q2

REPORT INFORMATION
  Report Type: 
  Country: None (occurrence: None)
  Receive Date: 20110610
  Receipt Date: 20110608
  Transmission Date: 20111010
  Serious: Yes (Other)
  Sender: FDA-Public Use
  Company Number: D0071674A

PATIENT
  Sex: Male

DRUGS (1)
  1. FLUTIDE JUNIOR [Suspect]
     Route: 055
     Dates: start: 20090101

REACTIONS (2)
  - PHARYNGEAL ABSCESS [None]
  - SURGERY [None]
